FAERS Safety Report 14782133 (Version 1)
Quarter: 2018Q2

REPORT INFORMATION
  Report Type: Report from Study
  Country: RO (occurrence: RO)
  Receive Date: 20180420
  Receipt Date: 20180420
  Transmission Date: 20180711
  Serious: Yes (Death)
  Sender: FDA-Public Use
  Company Number: RO-ROCHE-2111477

PATIENT
  Age: 65 Year
  Sex: Female
  Weight: 55.56 kg

DRUGS (1)
  1. HERCEPTIN [Suspect]
     Active Substance: TRASTUZUMAB
     Indication: METASTATIC NEOPLASM
     Route: 058
     Dates: start: 201709

REACTIONS (1)
  - Death [Fatal]

NARRATIVE: CASE EVENT DATE: 20180415
